FAERS Safety Report 17916323 (Version 1)
Quarter: 2020Q2

REPORT INFORMATION
  Report Type: Report from Study
  Country: US (occurrence: US)
  Receive Date: 20200619
  Receipt Date: 20200619
  Transmission Date: 20200714
  Serious: Yes (Hospitalization)
  Sender: FDA-Public Use
  Company Number: US-AMGEN-USASL2020096766

PATIENT
  Sex: Female

DRUGS (2)
  1. ENBREL [Suspect]
     Active Substance: ETANERCEPT
     Indication: RHEUMATOID ARTHRITIS
     Dosage: UNK, QMO
     Route: 065
  2. ENBREL [Suspect]
     Active Substance: ETANERCEPT
     Dosage: DOSE MAY BE MORE FREQUENTLY IF SYMPTOMS RE-APPEAR
     Route: 065

REACTIONS (3)
  - Infection [Recovering/Resolving]
  - Inappropriate schedule of product administration [Unknown]
  - Decreased immune responsiveness [Recovering/Resolving]
